FAERS Safety Report 7164750-9 (Version None)
Quarter: 2010Q4

REPORT INFORMATION
  Report Type: 
  Country: None (occurrence: None)
  Receive Date: 20101215
  Receipt Date: 20101210
  Transmission Date: 20110411
  Serious: Yes (Other)
  Sender: FDA-Public Use
  Company Number: US-AMGEN-USASP2010002001

PATIENT

DRUGS (2)
  1. NPLATE [Suspect]
     Indication: IDIOPATHIC THROMBOCYTOPENIC PURPURA
     Dosage: 82 A?G, UNK
     Dates: start: 20100805, end: 20101104
  2. NPLATE [Suspect]
     Dosage: UNK
     Dates: start: 20100805, end: 20101104

REACTIONS (1)
  - LYMPHOMA [None]
